FAERS Safety Report 14931749 (Version 11)
Quarter: 2022Q4

REPORT INFORMATION
  Report Type: Report from Study
  Country: US (occurrence: US)
  Receive Date: 20180524
  Receipt Date: 20221124
  Transmission Date: 20230113
  Serious: Yes (Death, Hospitalization, Other)
  Sender: FDA-Public Use
  Company Number: US-ACADIA PHARMACEUTICALS INC.-ACA-2018-007333

PATIENT
  Sex: Female

DRUGS (30)
  1. NUPLAZID [Suspect]
     Active Substance: PIMAVANSERIN TARTRATE
     Indication: Parkinson^s disease psychosis
     Dosage: 34 MG, QD
     Route: 048
     Dates: start: 2018
  2. NUPLAZID [Suspect]
     Active Substance: PIMAVANSERIN TARTRATE
     Dosage: 44 MG (34 MG 1 CAPSULE ONCE DAILY, ALONG WITH 1-10MG TABLET)
     Route: 048
     Dates: start: 2018
  3. NUPLAZID [Suspect]
     Active Substance: PIMAVANSERIN TARTRATE
     Dosage: 34 MG, QD
     Route: 048
     Dates: start: 2018
  4. NUPLAZID [Suspect]
     Active Substance: PIMAVANSERIN TARTRATE
     Dosage: 44 MG,QD  (34 MG 1 CAPSULE WITH 10 MG 1 TABLET)
     Route: 048
     Dates: start: 20181208
  5. NUPLAZID [Suspect]
     Active Substance: PIMAVANSERIN TARTRATE
     Dosage: 54 MILLIGRAM, QD (34 MILLIGRAM, QD (34 MG CAPSULE + 2, 10 MG TABLET)
     Route: 048
     Dates: start: 20190219
  6. NUPLAZID [Suspect]
     Active Substance: PIMAVANSERIN TARTRATE
     Indication: Parkinson^s disease psychosis
     Dosage: 44 MG (34 MG 1 CAPSULE ONCE DAILY, ALONG WITH 1-10MG TABLET)
     Route: 048
     Dates: start: 2018
  7. NUPLAZID [Suspect]
     Active Substance: PIMAVANSERIN TARTRATE
     Dosage: 44 MG (34 MG 1 CAPSULE ONCE DAILY, ALONG WITH 1-10MG TABLET)
     Route: 048
     Dates: start: 20181208
  8. NUPLAZID [Suspect]
     Active Substance: PIMAVANSERIN TARTRATE
     Dosage: 54 MILLIGRAM, QD (34 MILLIGRAM, QD (34 MG CAPSULE + 2, 10 MG TABLET)
     Route: 048
     Dates: start: 20190219
  9. NUPLAZID [Suspect]
     Active Substance: PIMAVANSERIN TARTRATE
     Indication: Hallucination
     Dosage: 34 MG, QD
     Route: 065
     Dates: start: 20180126, end: 2018
  10. NUPLAZID [Suspect]
     Active Substance: PIMAVANSERIN TARTRATE
     Indication: Delusion
     Dosage: 34 MG, QD
     Route: 048
     Dates: start: 20180208, end: 2018
  11. NUPLAZID [Suspect]
     Active Substance: PIMAVANSERIN TARTRATE
     Indication: Parkinson^s disease psychosis
     Dosage: 34 MG, QD
     Route: 048
     Dates: start: 2018
  12. NUPLAZID [Suspect]
     Active Substance: PIMAVANSERIN TARTRATE
     Dosage: UNK
     Route: 048
     Dates: start: 2018, end: 2018
  13. ALPRAZOLAM [Concomitant]
     Active Substance: ALPRAZOLAM
     Indication: Anxiety
     Dosage: 1/2-1 TABLET EVERY 4-6 HRS AS NEEDED
     Route: 048
  14. AZILECT [Concomitant]
     Active Substance: RASAGILINE MESYLATE
     Indication: Product used for unknown indication
     Dosage: 1 TABLET EVERYDAY IN THE MORNING
     Route: 048
  15. CARBIDOPA AND LEVODOPA [Concomitant]
     Active Substance: CARBIDOPA\LEVODOPA
     Indication: Product used for unknown indication
     Dosage: 2 TABLETS AT 6PM,1 TABLET AT 10 AM AND 2 PM AND 1 TABLET AT 6PM
     Route: 048
  16. CARBIDOPA AND LEVODOPA [Concomitant]
     Active Substance: CARBIDOPA\LEVODOPA
     Dosage: 1 TABLET
     Route: 048
  17. CEPHALEXIN [Concomitant]
     Active Substance: CEPHALEXIN
     Indication: Product used for unknown indication
     Dosage: 250 MG, UNK
  18. CLONAZEPAM [Concomitant]
     Active Substance: CLONAZEPAM
     Indication: Insomnia
     Dosage: 1/2 TABLET  AT BED TIME
  19. EXELON PATCH [Concomitant]
     Active Substance: RIVASTIGMINE
     Indication: Memory impairment
     Dosage: 1 PATCH EVERY DAY
     Route: 062
  20. FOSINOPRIL [Concomitant]
     Active Substance: FOSINOPRIL
     Indication: Product used for unknown indication
     Dosage: 1 TABLET EVERY DAY PRN
     Route: 048
  21. VITAMINS [Concomitant]
     Active Substance: VITAMINS
     Indication: Product used for unknown indication
  22. PAROXETINE [Concomitant]
     Active Substance: PAROXETINE
     Indication: Product used for unknown indication
     Dosage: 1 TABLET EVERY DAY
     Route: 048
  23. ROPINIROLE HYDROCHLORIDE [Concomitant]
     Active Substance: ROPINIROLE HYDROCHLORIDE
     Indication: Product used for unknown indication
     Dosage: 1 TABLET FOR 90 DAYS
     Route: 048
  24. ROPINIROLE HYDROCHLORIDE [Concomitant]
     Active Substance: ROPINIROLE HYDROCHLORIDE
     Dosage: 1 TABLET EVERYDAY AT EVENING
  25. SIMVASTATIN [Concomitant]
     Active Substance: SIMVASTATIN
     Indication: Product used for unknown indication
     Dosage: 1 TABLET AT BEDTIME
     Route: 048
  26. ADVIL PM [Concomitant]
     Active Substance: DIPHENHYDRAMINE CITRATE\IBUPROFEN
     Indication: Product used for unknown indication
  27. ASPIRIN [Concomitant]
     Active Substance: ASPIRIN
     Indication: Product used for unknown indication
  28. MELATONIN [Concomitant]
     Active Substance: MELATONIN
     Indication: Product used for unknown indication
  29. TYLENOL EXTRA STRENGTH [Concomitant]
     Active Substance: ACETAMINOPHEN
     Indication: Product used for unknown indication
  30. AMLODIPINE BESYLATE [Concomitant]
     Active Substance: AMLODIPINE BESYLATE
     Indication: Product used for unknown indication

REACTIONS (22)
  - Cerebrovascular accident [Fatal]
  - Blood pressure increased [Fatal]
  - Blood pressure fluctuation [Unknown]
  - Rectal prolapse repair [Recovered/Resolved]
  - Diastolic dysfunction [Unknown]
  - Echocardiogram abnormal [Unknown]
  - Cognitive disorder [Unknown]
  - Anxiety [Unknown]
  - Nonspecific reaction [Unknown]
  - Hiatus hernia [Unknown]
  - Upper limb fracture [Unknown]
  - Therapeutic response unexpected [Recovered/Resolved]
  - Fall [Unknown]
  - Hallucination [Not Recovered/Not Resolved]
  - Hallucination [Not Recovered/Not Resolved]
  - Hallucination, visual [Unknown]
  - Hallucination, visual [Unknown]
  - Confusional state [Recovered/Resolved]
  - Hallucination [Not Recovered/Not Resolved]
  - Overdose [Unknown]
  - Overdose [Unknown]
  - Overdose [Not Recovered/Not Resolved]

NARRATIVE: CASE EVENT DATE: 20180101
